FAERS Safety Report 5584325-2 (Version None)
Quarter: 2008Q1

REPORT INFORMATION
  Report Type: 
  Country: None (occurrence: None)
  Receive Date: 20080108
  Receipt Date: 20071003
  Transmission Date: 20080703
  Serious: No
  Sender: FDA-Public Use
  Company Number: US-BAYER-200713231BCC

PATIENT
  Age: 62 Year
  Sex: Male
  Weight: 73 kg

DRUGS (6)
  1. ALEVE [Suspect]
     Indication: BACK PAIN
     Dosage: UNIT DOSE: 220 MG
     Route: 048
     Dates: start: 20070901
  2. ALEVE [Suspect]
     Dosage: AS USED: 220 MG  UNIT DOSE: 220 MG
     Route: 048
     Dates: start: 20070901
  3. OMEPRAZOLE [Concomitant]
  4. ZOCOR [Concomitant]
  5. METOPROLOL TARTRATE [Concomitant]
  6. COSTCO ASPIRIN [Concomitant]

REACTIONS (2)
  - HYPOAESTHESIA [None]
  - PARAESTHESIA [None]
